FAERS Safety Report 8398937-4 (Version None)
Quarter: 2012Q1

REPORT INFORMATION
  Report Type: 
  Country: None (occurrence: None)
  Receive Date: 20120323
  Receipt Date: 20110106
  Transmission Date: 20120608
  Serious: Yes (Hospitalization)
  Sender: FDA-Public Use
  Company Number: 163-21880-11010492

PATIENT
  Age: 63 Year
  Sex: Male

DRUGS (4)
  1. REVLIMID [Suspect]
     Indication: NON-HODGKIN'S LYMPHOMA
     Dosage: 10 MG, DAILY X21 DAYS WITH ONE WEEK OFF, PO
     Route: 048
     Dates: start: 20101117
  2. ASPIRIN [Concomitant]
  3. ATENOLOL [Concomitant]
  4. ALLOPURINOL [Concomitant]

REACTIONS (2)
  - PNEUMONIA [None]
  - CARDIAC FAILURE CONGESTIVE [None]
